FAERS Safety Report 4741026-8 (Version None)
Quarter: 2005Q3

REPORT INFORMATION
  Report Type: 
  Country: None (occurrence: None)
  Receive Date: 20050810
  Receipt Date: 20050606
  Transmission Date: 20060218
  Serious: No
  Sender: FDA-Public Use
  Company Number: US-GLAXOSMITHKLINE-A0561392A

PATIENT
  Age: 77 Year
  Sex: Male

DRUGS (6)
  1. PAROXETINE HCL [Suspect]
     Indication: DEPRESSION
     Dosage: 20MG PER DAY
     Route: 048
     Dates: start: 20050520
  2. ASPIRIN [Concomitant]
  3. NITROGLYCERIN [Concomitant]
  4. ZESTRIL [Concomitant]
  5. VALIUM [Concomitant]
  6. ATENOLOL [Concomitant]

REACTIONS (3)
  - BACK PAIN [None]
  - CHEST PAIN [None]
  - NECK PAIN [None]
